FAERS Safety Report 9637423 (Version 2)
Quarter: 2013Q4

REPORT INFORMATION
  Report Type: Not Available
  Country: GB (occurrence: GB)
  Receive Date: 20131022
  Receipt Date: 20131101
  Transmission Date: 20140711
  Serious: Yes (Death, Life-Threatening, Other)
  Sender: FDA-Public Use
  Company Number: GB-ASTELLAS-2013EU009033

PATIENT
  Age: 28 Year
  Sex: Female

DRUGS (1)
  1. MYCAMINE [Suspect]
     Indication: FUNGAL INFECTION
     Dosage: UNK
     Route: 065

REACTIONS (4)
  - Death [Fatal]
  - Pneumonia [Unknown]
  - Respiratory failure [Unknown]
  - Renal failure acute [Unknown]
